FAERS Safety Report 9628116 (Version 2)
Quarter: 2013Q4

REPORT INFORMATION
  Report Type: Report from Study
  Country: BR (occurrence: BR)
  Receive Date: 20131017
  Receipt Date: 20131114
  Transmission Date: 20140711
  Serious: Yes (Other)
  Sender: FDA-Public Use
  Company Number: BR-ROCHE-1289027

PATIENT
  Sex: Female
  Weight: 105 kg

DRUGS (3)
  1. MABTHERA [Suspect]
     Indication: RHEUMATOID ARTHRITIS
     Route: 042
  2. PURAN T4 [Concomitant]
  3. ROSUVASTATIN [Concomitant]
     Indication: BLOOD CHOLESTEROL
     Route: 065

REACTIONS (3)
  - Chondropathy [Recovered/Resolved]
  - Herpes virus infection [Recovering/Resolving]
  - Immunodeficiency [Unknown]
